FAERS Safety Report 10385030 (Version 1)
Quarter: 2014Q3

REPORT INFORMATION
  Report Type: Spontaneous
  Country: JP (occurrence: JP)
  Receive Date: 20140814
  Receipt Date: 20140814
  Transmission Date: 20150326
  Serious: Yes (Other)
  Sender: FDA-Public Use
  Company Number: PHHY2011JP122063

PATIENT
  Age: 74 Year
  Sex: Male

DRUGS (4)
  1. LASIX [Concomitant]
     Active Substance: FUROSEMIDE
  2. BROTIZOLAM [Concomitant]
     Active Substance: BROTIZOLAM
  3. TASIGNA [Suspect]
     Active Substance: NILOTINIB
     Indication: CHRONIC MYELOID LEUKAEMIA
     Dates: start: 20110927
  4. TANNIC ACID [Concomitant]
     Active Substance: TANNIC ACID

REACTIONS (1)
  - Electrocardiogram QT prolonged [Unknown]
